FAERS Safety Report 6187567-0 (Version None)
Quarter: 2009Q2

REPORT INFORMATION
  Report Type: 
  Country: None (occurrence: None)
  Receive Date: 20090508
  Receipt Date: 20090430
  Transmission Date: 20091009
  Serious: Yes (Other)
  Sender: FDA-Public Use
  Company Number: 1000005763

PATIENT
  Sex: Female

DRUGS (2)
  1. MEMANTINE HCL [Suspect]
  2. ASPIRIN [Concomitant]

REACTIONS (1)
  - ANGIOEDEMA [None]
